FAERS Safety Report 9391541 (Version 4)
Quarter: 2014Q1

REPORT INFORMATION
  Report Type: Spontaneous
  Country: US (occurrence: US)
  Receive Date: 20130709
  Receipt Date: 20140303
  Transmission Date: 20141002
  Serious: No
  Sender: FDA-Public Use
  Company Number: US-B.I. PHARMACEUTICALS,INC./RIDGEFIELD-2013-BI-19205BP

PATIENT
  Sex: Female

DRUGS (10)
  1. COMBIVENT [Suspect]
     Indication: EMPHYSEMA
     Dosage: STRENGTH: 18 MCG / 103 MCG;
     Route: 055
     Dates: start: 2007, end: 201307
  2. COMBIVENT [Suspect]
     Dosage: STRENGTH: 18 MCG / 103 MCG;
     Route: 055
     Dates: start: 2009, end: 201307
  3. COMBIVENT [Suspect]
     Indication: CHRONIC OBSTRUCTIVE PULMONARY DISEASE
     Dosage: STRENGTH:20MCG/100MCG, DAILY DOSE :160MCG/800MCG
     Route: 055
     Dates: start: 201307
  4. COMBIVENT [Suspect]
     Indication: EMPHYSEMA
     Dosage: STRENGTH:20MCG/100MCG
     Route: 055
     Dates: start: 2013
  5. SYMBICORT [Concomitant]
     Indication: EMPHYSEMA
     Route: 055
  6. BYSTOLIC [Concomitant]
     Indication: HYPERTENSION
     Dosage: 10 MG
     Route: 048
  7. POTASSIUM [Concomitant]
     Route: 048
  8. METOLAZONE [Concomitant]
     Dosage: 2.5 MG
     Route: 048
  9. BAYER ASPIRIN [Concomitant]
     Indication: HEADACHE
     Route: 048
  10. BAYER ASPIRIN [Concomitant]
     Indication: DISCOMFORT

REACTIONS (16)
  - Hypertension [Recovered/Resolved]
  - Throat tightness [Not Recovered/Not Resolved]
  - Insomnia [Not Recovered/Not Resolved]
  - Upper-airway cough syndrome [Not Recovered/Not Resolved]
  - Local swelling [Not Recovered/Not Resolved]
  - Overdose [Not Recovered/Not Resolved]
  - Drug ineffective [Not Recovered/Not Resolved]
  - Drug prescribing error [Not Recovered/Not Resolved]
  - Vision blurred [Not Recovered/Not Resolved]
  - Abnormal loss of weight [Not Recovered/Not Resolved]
  - Intentional overdose [Not Recovered/Not Resolved]
  - Poor quality sleep [Not Recovered/Not Resolved]
  - Eye pain [Not Recovered/Not Resolved]
  - Dizziness [Not Recovered/Not Resolved]
  - Vision blurred [Not Recovered/Not Resolved]
  - Product quality issue [Unknown]
